FAERS Safety Report 15620079 (Version 1)
Quarter: 2018Q4

REPORT INFORMATION
  Report Type: Spontaneous
  Country: KR (occurrence: KR)
  Receive Date: 20181115
  Receipt Date: 20181115
  Transmission Date: 20190205
  Serious: Yes (Other)
  Sender: FDA-Public Use
  Company Number: KR-ASTRAZENECA-2018SF47474

PATIENT
  Age: 68 Year
  Sex: Female

DRUGS (1)
  1. GEFITINIB. [Suspect]
     Active Substance: GEFITINIB
     Route: 048
     Dates: start: 201210, end: 201604

REACTIONS (7)
  - Metastases to pleura [Unknown]
  - Dysphagia [Unknown]
  - Malignant neoplasm progression [Unknown]
  - Dizziness [Unknown]
  - Metastases to lymph nodes [Unknown]
  - Headache [Unknown]
  - Metastases to central nervous system [Unknown]
